FAERS Safety Report 10400670 (Version 1)
Quarter: 2014Q3

REPORT INFORMATION
  Report Type: Spontaneous
  Country: US (occurrence: US)
  Receive Date: 20140821
  Receipt Date: 20140821
  Transmission Date: 20150326
  Serious: No
  Sender: FDA-Public Use
  Company Number: US-ASTRAZENECA-2014SE03177

PATIENT
  Age: 61 Year
  Sex: Female
  Weight: 64.9 kg

DRUGS (5)
  1. SYMBICORT [Suspect]
     Active Substance: BUDESONIDE\FORMOTEROL FUMARATE DIHYDRATE
     Indication: ASTHMA
     Dosage: 80/4.5 MCG 2 PUFFS BID
     Route: 055
  2. LISINOPRIL. [Suspect]
     Active Substance: LISINOPRIL
     Indication: OEDEMA
     Route: 048
  3. LISINOPRIL. [Suspect]
     Active Substance: LISINOPRIL
     Indication: OEDEMA
     Route: 048
     Dates: start: 201307
  4. LISINOPRIL. [Suspect]
     Active Substance: LISINOPRIL
     Indication: HYPERTENSION
     Route: 048
     Dates: start: 201307
  5. LISINOPRIL. [Suspect]
     Active Substance: LISINOPRIL
     Indication: HYPERTENSION
     Route: 048

REACTIONS (8)
  - Intentional product misuse [Unknown]
  - Oropharyngeal pain [Unknown]
  - Aphonia [Unknown]
  - Candida infection [Unknown]
  - Drug effect increased [Unknown]
  - Device misuse [Unknown]
  - Oedema [Unknown]
  - Incorrect product storage [Unknown]
